FAERS Safety Report 5739218-4 (Version None)
Quarter: 2008Q2

REPORT INFORMATION
  Report Type: 
  Country: None (occurrence: None)
  Receive Date: 20080515
  Receipt Date: 20080505
  Transmission Date: 20081010
  Serious: Yes (Other)
  Sender: FDA-Public Use
  Company Number: PHHY2008NZ05618

PATIENT
  Sex: Female

DRUGS (4)
  1. FEMARA [Concomitant]
     Indication: BREAST CANCER
  2. HORMONES [Concomitant]
     Indication: HORMONE REPLACEMENT THERAPY
  3. TAMOXIFEN CITRATE [Concomitant]
     Indication: BREAST CANCER FEMALE
  4. GLEEVEC [Suspect]
     Indication: CHRONIC MYELOID LEUKAEMIA
     Dosage: 600 MG, QD
     Route: 048

REACTIONS (5)
  - BREAST CANCER [None]
  - CHRONIC MYELOID LEUKAEMIA [None]
  - LIPASE INCREASED [None]
  - RADIOTHERAPY [None]
  - THERAPEUTIC RESPONSE DECREASED [None]
